FAERS Safety Report 18280516 (Version 1)
Quarter: 2020Q3

REPORT INFORMATION
  Report Type: Spontaneous
  Country: US (occurrence: US)
  Receive Date: 20200917
  Receipt Date: 20200917
  Transmission Date: 20201103
  Serious: Yes (Death, Other)
  Sender: FDA-Public Use
  Company Number: US-PURDUE-USA-2020-0166596

PATIENT
  Age: 42 Year
  Sex: Male
  Weight: 96.15 kg

DRUGS (5)
  1. XANAX [Suspect]
     Active Substance: ALPRAZOLAM
     Indication: PRODUCT USED FOR UNKNOWN INDICATION
     Route: 065
  2. OXYCONTIN [Suspect]
     Active Substance: OXYCODONE HYDROCHLORIDE
     Indication: PRODUCT USED FOR UNKNOWN INDICATION
     Dosage: UNK
     Route: 048
  3. CAFFEINE. [Concomitant]
     Active Substance: CAFFEINE
     Indication: PRODUCT USED FOR UNKNOWN INDICATION
     Route: 065
  4. ADDERALL [Concomitant]
     Active Substance: AMPHETAMINE ASPARTATE\AMPHETAMINE SULFATE\DEXTROAMPHETAMINE SACCHARATE\DEXTROAMPHETAMINE SULFATE
     Indication: PRODUCT USED FOR UNKNOWN INDICATION
     Route: 065
  5. OXYCODONE HYDROCHLORIDE (SIMILAR TO NDA 22?272) [Suspect]
     Active Substance: OXYCODONE HYDROCHLORIDE
     Indication: PRODUCT USED FOR UNKNOWN INDICATION
     Route: 048

REACTIONS (23)
  - Overdose [Fatal]
  - Pulmonary valve disease [Unknown]
  - Arteriosclerosis coronary artery [Unknown]
  - Drug dependence [Unknown]
  - Mitral valve disease [Unknown]
  - Loss of consciousness [Unknown]
  - Left ventricular hypertrophy [Unknown]
  - Contusion [Unknown]
  - Hypertension [Unknown]
  - Congestive hepatopathy [Unknown]
  - Pulmonary congestion [Unknown]
  - Hepatic steatosis [Unknown]
  - Hypertensive heart disease [Unknown]
  - Drug abuse [Unknown]
  - Attention deficit hyperactivity disorder [Unknown]
  - Scar [Unknown]
  - Toxicity to various agents [Fatal]
  - Pneumonia [Unknown]
  - Arteriosclerosis [Unknown]
  - Cerebral arteriosclerosis [Unknown]
  - Aortic arteriosclerosis [Unknown]
  - Skin abrasion [Unknown]
  - Cardiomegaly [Unknown]

NARRATIVE: CASE EVENT DATE: 20150911
